FAERS Safety Report 9632849 (Version 1)
Quarter: 2013Q4

REPORT INFORMATION
  Report Type: Report from Study
  Country: US (occurrence: US)
  Receive Date: 20131018
  Receipt Date: 20131018
  Transmission Date: 20140711
  Serious: Yes (Death)
  Sender: FDA-Public Use
  Company Number: US-ROCHE-1289406

PATIENT
  Sex: Female

DRUGS (25)
  1. AVASTIN [Suspect]
     Indication: CHOLANGIOCARCINOMA
     Route: 042
     Dates: start: 20110426
  2. ELOXATIN [Concomitant]
  3. 5-FU [Concomitant]
  4. DEXAMETHASONE SODIUM PHOSPHATE [Concomitant]
     Route: 042
     Dates: start: 20110426
  5. DEXTROSE [Concomitant]
     Route: 042
     Dates: start: 20110510
  6. FLUOROURACIL [Concomitant]
     Route: 042
     Dates: start: 20110426
  7. FLUOROURACIL [Concomitant]
     Dosage: OVER 46 HOURS
     Route: 042
     Dates: start: 20110426
  8. LEUCOVORIN CALCIUM [Concomitant]
     Route: 042
     Dates: start: 20110426
  9. PALONOSETRON HYDROCHLORIDE [Concomitant]
     Route: 042
     Dates: start: 20110426
  10. SOLU-MEDROL [Concomitant]
     Route: 042
     Dates: start: 20110510
  11. KETOROLAC TROMETHAMINE [Concomitant]
     Route: 042
     Dates: start: 20110510
  12. MORPHINE SULPHATE SR [Concomitant]
  13. LORAZEPAM [Concomitant]
  14. SENNA [Concomitant]
  15. LEVSIN [Concomitant]
  16. PHENERGAN [Concomitant]
  17. OXYCODONE [Concomitant]
  18. AMBIEN [Concomitant]
  19. XANAX [Concomitant]
  20. TRAMADOL [Concomitant]
  21. METHYLPREDNISOLONE [Concomitant]
  22. LASIX [Concomitant]
  23. PIROXICAM [Concomitant]
  24. SODIUM CHLORIDE [Concomitant]
     Route: 065
     Dates: start: 20110524
  25. HEPARIN SODIUM [Concomitant]

REACTIONS (1)
  - Death [Fatal]
